FAERS Safety Report 13738771 (Version 1)
Quarter: 2017Q3

REPORT INFORMATION
  Report Type: Report from Study
  Country: US (occurrence: US)
  Receive Date: 20170710
  Receipt Date: 20170710
  Transmission Date: 20171127
  Serious: Yes (Other)
  Sender: FDA-Public Use
  Company Number: US-SAOL THERAPEUTICS-2017SAO00576

PATIENT
  Age: 51 Year
  Sex: Female

DRUGS (18)
  1. COMPOUNDED BACLOFEN [Suspect]
     Active Substance: BACLOFEN
     Dosage: 54.77 ?G, \DAY
     Route: 037
     Dates: start: 20160504
  2. MORPHINE [Suspect]
     Active Substance: MORPHINE
     Dosage: 0.2499 MG, \DAY
     Route: 037
     Dates: start: 20160309, end: 20160418
  3. MORPHINE [Suspect]
     Active Substance: MORPHINE
     Dosage: 0.2748 MG, \DAY
     Route: 037
     Dates: start: 20160418, end: 20160504
  4. MORPHINE [Suspect]
     Active Substance: MORPHINE
     Dosage: 0.3925 MG, \DAY
     Route: 037
     Dates: start: 20160418, end: 20160504
  5. BUPIVACAINE. [Suspect]
     Active Substance: BUPIVACAINE
     Dosage: 11.776 MG, \DAY
     Route: 037
     Dates: start: 20160418, end: 20160504
  6. COMPOUNDED BACLOFEN [Suspect]
     Active Substance: BACLOFEN
     Dosage: 37.49 ?G, \DAY
     Route: 037
     Dates: start: 20160309, end: 20160418
  7. COMPOUNDED BACLOFEN [Suspect]
     Active Substance: BACLOFEN
     Dosage: 41.21 ?G, \DAY
     Route: 037
     Dates: start: 20160418, end: 20160504
  8. COMPOUNDED BACLOFEN [Suspect]
     Active Substance: BACLOFEN
     Dosage: 37.07 ?G, \DAY
     Route: 037
     Dates: start: 20160504
  9. BUPIVACAINE. [Suspect]
     Active Substance: BUPIVACAINE
     Dosage: 8.243 MG, \DAY
     Route: 037
     Dates: start: 20160418, end: 20160504
  10. MORPHINE [Suspect]
     Active Substance: MORPHINE
     Dosage: 0.3651 MG, \DAY
     Route: 037
     Dates: start: 20160504
  11. BUPIVACAINE. [Suspect]
     Active Substance: BUPIVACAINE
     Dosage: 10.954 MG, \DAY
     Route: 037
     Dates: start: 20160504
  12. MORPHINE [Suspect]
     Active Substance: MORPHINE
     Dosage: 0.3086 MG, \DAY
     Route: 037
     Dates: start: 20160309, end: 20160418
  13. BUPIVACAINE. [Suspect]
     Active Substance: BUPIVACAINE
     Dosage: 7.414 MG, \DAY
     Route: 037
     Dates: start: 20160504
  14. MORPHINE [Suspect]
     Active Substance: MORPHINE
     Dosage: 0.2471 MG, \DAY
     Route: 037
     Dates: start: 20160504
  15. COMPOUNDED BACLOFEN [Suspect]
     Active Substance: BACLOFEN
     Dosage: 58.88 ?G, \DAY
     Route: 037
     Dates: start: 20160418, end: 20160504
  16. BUPIVACAINE. [Suspect]
     Active Substance: BUPIVACAINE
     Dosage: 9.257 MG, \DAY
     Route: 037
     Dates: start: 20160309, end: 20160418
  17. COMPOUNDED BACLOFEN [Suspect]
     Active Substance: BACLOFEN
     Dosage: 46.29 ?G, \DAY
     Route: 037
     Dates: start: 20160309, end: 20160418
  18. BUPIVACAINE. [Suspect]
     Active Substance: BUPIVACAINE
     Dosage: 7.498 MG, \DAY
     Route: 037
     Dates: start: 20160309, end: 20160418

REACTIONS (2)
  - Catheter site pain [Recovered/Resolved]
  - Pain [Recovered/Resolved]

NARRATIVE: CASE EVENT DATE: 20160512
